FAERS Safety Report 17044196 (Version 2)
Quarter: 2019Q4

REPORT INFORMATION
  Report Type: Spontaneous
  Country: CN (occurrence: CN)
  Receive Date: 20191118
  Receipt Date: 20191202
  Transmission Date: 20200122
  Serious: Yes (Death, Hospitalization)
  Sender: FDA-Public Use
  Company Number: CN-BAYER-2019-207633

PATIENT
  Age: 50 Year
  Sex: Female

DRUGS (4)
  1. AN NEI ZHEN [AMLODIPINE BESILATE] [Concomitant]
     Indication: HYPERTENSION
     Route: 048
  2. AN NEI XI [Concomitant]
     Indication: HYPERTENSION
     Route: 048
  3. MIRENA [Suspect]
     Active Substance: LEVONORGESTREL
     Indication: MENORRHAGIA
  4. MIRENA [Suspect]
     Active Substance: LEVONORGESTREL
     Indication: MENORRHAGIA
     Dosage: 20 MCG/24HR, CONT
     Route: 015
     Dates: start: 20191016

REACTIONS (3)
  - Death [Fatal]
  - Abdominal pain [Not Recovered/Not Resolved]
  - Infection [None]

NARRATIVE: CASE EVENT DATE: 2019
